FAERS Safety Report 7011806-7 (Version None)
Quarter: 2010Q3

REPORT INFORMATION
  Report Type: 
  Country: None (occurrence: None)
  Receive Date: 20100923
  Receipt Date: 20100311
  Transmission Date: 20110219
  Serious: No
  Sender: FDA-Public Use
  Company Number: US-WYE-H14115310

PATIENT
  Age: 32 Year
  Sex: Female
  Weight: 113.5 kg

DRUGS (2)
  1. ADVIL PM [Suspect]
     Indication: BACK PAIN
     Dosage: ONE LIQUI-GEL PER DAY, BEFORE SLEEP
     Route: 048
     Dates: start: 20100301, end: 20100307
  2. GLUCOPHAGE [Concomitant]

REACTIONS (4)
  - ABDOMINAL PAIN UPPER [None]
  - DYSPEPSIA [None]
  - VAGINAL HAEMORRHAGE [None]
  - VOMITING [None]
